FAERS Safety Report 17042085 (Version 4)
Quarter: 2020Q2

REPORT INFORMATION
  Report Type: Report from Study
  Country: US (occurrence: US)
  Receive Date: 20191118
  Receipt Date: 20200619
  Transmission Date: 20200713
  Serious: Yes (Other)
  Sender: FDA-Public Use
  Company Number: US-BEH-2019109359

PATIENT
  Age: 57 Year
  Sex: Male
  Weight: 81.63 kg

DRUGS (1)
  1. HIZENTRA [Suspect]
     Active Substance: HUMAN IMMUNOGLOBULIN G
     Indication: CHRONIC INFLAMMATORY DEMYELINATING POLYRADICULONEUROPATHY
     Dosage: 20 GRAM/ROUND
     Route: 058
     Dates: start: 20181201, end: 20181230

REACTIONS (6)
  - Rash pruritic [Recovered/Resolved]
  - Injection site erythema [Unknown]
  - Rash macular [Recovered/Resolved]
  - Injection site rash [Recovered/Resolved]
  - Injection site rash [Recovered/Resolved]
  - Injection site pain [Unknown]

NARRATIVE: CASE EVENT DATE: 20181201
